FAERS Safety Report 4446047-0 (Version None)
Quarter: 2004Q3

REPORT INFORMATION
  Report Type: 
  Country: None (occurrence: None)
  Receive Date: 20040910
  Receipt Date: 20040901
  Transmission Date: 20050211
  Serious: Yes (Hospitalization)
  Sender: FDA-Public Use
  Company Number: PT-GLAXOSMITHKLINE-B0344349A

PATIENT
  Age: 35 Year
  Sex: Male

DRUGS (4)
  1. ABACAVIR SULFATE + LAMIVUDINE + ZIDOVUDINE [Suspect]
     Indication: HIV INFECTION
  2. D4T [Concomitant]
     Indication: HIV INFECTION
     Dates: start: 19990101
  3. 3TC [Concomitant]
     Indication: HIV INFECTION
     Dates: start: 19990101
  4. INDINAVIR [Concomitant]
     Indication: HIV INFECTION
     Dates: start: 19990101

REACTIONS (10)
  - ASCITES [None]
  - BLOOD AMYLASE INCREASED [None]
  - BLOOD CREATININE ABNORMAL [None]
  - BLOOD UREA INCREASED [None]
  - DYSPNOEA [None]
  - HAEMOLYSIS [None]
  - PANCREATITIS [None]
  - PNEUMONIA [None]
  - RENAL FAILURE [None]
  - RESPIRATORY DISTRESS [None]
